FAERS Safety Report 5445844-2 (Version None)
Quarter: 2007Q3

REPORT INFORMATION
  Report Type: 
  Country: None (occurrence: None)
  Receive Date: 20070904
  Receipt Date: 20070820
  Transmission Date: 20080115
  Serious: Yes (Other)
  Sender: FDA-Public Use
  Company Number: GXKR2007GB07123

PATIENT
  Age: 19 Year
  Sex: Female

DRUGS (1)
  1. PHENOXYMETHYL PENICILLIN [Suspect]
     Indication: UPPER RESPIRATORY TRACT INFECTION

REACTIONS (5)
  - BLISTER [None]
  - LIP PAIN [None]
  - MALAISE [None]
  - TOXIC EPIDERMAL NECROLYSIS [None]
  - VULVOVAGINAL DISCOMFORT [None]
